FAERS Safety Report 8617885-5 (Version None)
Quarter: 2012Q3

REPORT INFORMATION
  Report Type: 
  Country: None (occurrence: None)
  Receive Date: 20120824
  Receipt Date: 20120425
  Transmission Date: 20120928
  Serious: No
  Sender: FDA-Public Use
  Company Number: US-ASTRAZENECA-2012SE20010

PATIENT
  Age: 60 Year
  Sex: Male
  Weight: 72.6 kg

DRUGS (4)
  1. SPIRIVA [Concomitant]
  2. ALBUTEROL [Concomitant]
  3. SYMBICORT [Suspect]
     Indication: CHRONIC OBSTRUCTIVE PULMONARY DISEASE
     Dosage: 160/4.5 MCG,TWO PUFFS, TWO TIMES A DAY
     Route: 055
  4. PERCOCET [Concomitant]

REACTIONS (6)
  - TOOTH INJURY [None]
  - BLOOD PRESSURE INCREASED [None]
  - CHAPPED LIPS [None]
  - DRY MOUTH [None]
  - DYSPNOEA [None]
  - DRUG EFFECT DECREASED [None]
